FAERS Safety Report 5552647-7 (Version None)
Quarter: 2007Q4

REPORT INFORMATION
  Report Type: 
  Country: None (occurrence: None)
  Receive Date: 20071210
  Receipt Date: 20071129
  Transmission Date: 20080405
  Serious: Yes (Other)
  Sender: FDA-Public Use
  Company Number: 100#08#2007-05011

PATIENT
  Age: 60 Year
  Sex: Female

DRUGS (5)
  1. LEFLUNOMIDE [Suspect]
     Indication: PSORIATIC ARTHROPATHY
     Dosage: 20 MG
  2. METHOTREXATE [Suspect]
     Indication: PSORIATIC ARTHROPATHY
  3. PREDNISONE [Concomitant]
  4. HYDROXYCHLOROQUINE (HYDROCHLOROQUINE) (HYDROXYCHLOROQUINE) [Concomitant]
  5. SULPHASALAZINE (SULFASALAZINE) (SULPHASALAZINE) [Concomitant]

REACTIONS (7)
  - ANAEMIA [None]
  - ENTEROBACTER INFECTION [None]
  - HAEMOPHILUS INFECTION [None]
  - PNEUMONIA [None]
  - PSEUDOMONAS INFECTION [None]
  - PULMONARY CAVITATION [None]
  - STAPHYLOCOCCAL INFECTION [None]
